FAERS Safety Report 4450374-0 (Version None)
Quarter: 2004Q3

REPORT INFORMATION
  Report Type: 
  Country: None (occurrence: None)
  Receive Date: 20040914
  Receipt Date: 20040826
  Transmission Date: 20050211
  Serious: Yes (Life-Threatening)
  Sender: FDA-Public Use
  Company Number: A02200401862

PATIENT
  Age: 21 Year
  Sex: Female

DRUGS (2)
  1. PLAQUENIL [Suspect]
     Indication: MIXED CONNECTIVE TISSUE DISEASE
     Dosage: 200 MG TID ORAL-TIME TO ONSET : 1 YEAR 47 WEEKS 1 DAY
     Route: 048
     Dates: start: 20020419, end: 20040318
  2. GESTODENE AND ETHINYL ESTRADIOL [Concomitant]

REACTIONS (4)
  - BURSITIS [None]
  - PHLEBITIS [None]
  - VENOUS OCCLUSION [None]
  - VENOUS THROMBOSIS LIMB [None]
